FAERS Safety Report 24213054 (Version 1)
Quarter: 2024Q3

REPORT INFORMATION
  Report Type: Spontaneous
  Country: AT (occurrence: AT)
  Receive Date: 20240815
  Receipt Date: 20240815
  Transmission Date: 20241017
  Serious: Yes (Hospitalization, Other)
  Sender: AMGEN
  Company Number: AT-AMGEN-AUTSP2024158901

PATIENT
  Age: 66 Year
  Sex: Female

DRUGS (6)
  1. CARFILZOMIB [Suspect]
     Active Substance: CARFILZOMIB
     Indication: Plasma cell myeloma
     Dosage: UNK
     Route: 065
     Dates: start: 201712
  2. CARFILZOMIB [Suspect]
     Active Substance: CARFILZOMIB
     Dosage: UNK (GRADUAL UPTITRATION OF CARFILZOMIB UP TO 70 MG/M2)
     Route: 065
     Dates: start: 202108
  3. CARFILZOMIB [Suspect]
     Active Substance: CARFILZOMIB
     Dosage: UNK, Q2WK (CARFILZOMIB ADMINISTRATION WAS ALSO REDUCED TO BIWEEKLY)
     Route: 065
  4. DEXAMETHASONE [Suspect]
     Active Substance: DEXAMETHASONE
     Indication: Plasma cell myeloma
     Dosage: UNK
     Route: 065
     Dates: start: 201712
  5. LENALIDOMIDE [Suspect]
     Active Substance: LENALIDOMIDE
     Indication: Plasma cell myeloma
     Dosage: UNK
     Route: 065
     Dates: start: 201712
  6. ISATUXIMAB [Suspect]
     Active Substance: ISATUXIMAB
     Indication: Plasma cell myeloma
     Dosage: UNK
     Route: 065
     Dates: start: 202108

REACTIONS (8)
  - Pancytopenia [Unknown]
  - Hypertension [Unknown]
  - Plasma cell myeloma refractory [Unknown]
  - Secondary immunodeficiency [Unknown]
  - Myeloid maturation arrest [Unknown]
  - COVID-19 [Recovering/Resolving]
  - Upper respiratory tract infection [Recovering/Resolving]
  - Gastroenteritis [Recovering/Resolving]

NARRATIVE: CASE EVENT DATE: 20170101
